FAERS Safety Report 24779056 (Version 1)
Quarter: 2024Q4

REPORT INFORMATION
  Report Type: Spontaneous
  Country: US (occurrence: None)
  Receive Date: 20241226
  Receipt Date: 20241226
  Transmission Date: 20250115
  Serious: No
  Sender: Public
  Company Number: None

PATIENT
  Age: 50 Year
  Sex: Female
  Weight: 94 kg

DRUGS (1)
  1. LAMOTRIGINE [Suspect]
     Active Substance: LAMOTRIGINE
     Dosage: FREQUENCY : DAILY;?
     Route: 048
     Dates: start: 20240318

REACTIONS (9)
  - Skin burning sensation [None]
  - Erythema multiforme [None]
  - Pruritus [None]
  - Vomiting [None]
  - Headache [None]
  - Diarrhoea [None]
  - Feeling hot [None]
  - Feeling hot [None]
  - Therapy interrupted [None]

NARRATIVE: CASE EVENT DATE: 20240416
